FAERS Safety Report 6474187-3 (Version None)
Quarter: 2009Q4

REPORT INFORMATION
  Report Type: 
  Country: None (occurrence: None)
  Receive Date: 20091204
  Receipt Date: 20091126
  Transmission Date: 20100525
  Serious: Yes (Hospitalization)
  Sender: FDA-Public Use
  Company Number: BR-PFIZER INC-2009207835

PATIENT
  Age: 49 Year
  Sex: Male
  Weight: 79.819 kg

DRUGS (10)
  1. ALDACTONE [Suspect]
     Indication: SCHISTOSOMIASIS
     Dosage: 1 DF, 1X/DAY
     Route: 048
     Dates: start: 20090601
  2. ALDACTONE [Suspect]
     Indication: FLUID RETENTION
  3. ALDACTONE [Suspect]
     Indication: BLOOD CHOLESTEROL INCREASED
  4. APRESOLINE [Concomitant]
     Dosage: UNK
  5. ATENOLOL [Concomitant]
     Dosage: UNK
  6. LOSARTAN [Concomitant]
     Dosage: UNK
  7. LASIX [Concomitant]
     Dosage: UNK
  8. SINVACOR [Concomitant]
     Dosage: UNK
  9. AAS [Concomitant]
     Dosage: UNK
  10. PREDNISONE [Concomitant]
     Dosage: UNK

REACTIONS (5)
  - ABDOMINAL DISCOMFORT [None]
  - ABDOMINAL DISTENSION [None]
  - BLOOD GLUCOSE INCREASED [None]
  - CHILLS [None]
  - PAIN IN EXTREMITY [None]
